FAERS Safety Report 18376012 (Version 1)
Quarter: 2020Q4

REPORT INFORMATION
  Report Type: Spontaneous
  Country: FR (occurrence: FR)
  Receive Date: 20201013
  Receipt Date: 20201013
  Transmission Date: 20210114
  Serious: Yes (Death)
  Sender: FDA-Public Use
  Company Number: FR-SUN PHARMACEUTICAL INDUSTRIES LTD-2020RR-264085

PATIENT
  Age: 79 Year
  Sex: Female

DRUGS (3)
  1. CITALOPRAM [Suspect]
     Active Substance: CITALOPRAM HYDROBROMIDE
     Indication: DEPRESSION
     Dosage: 10 MILLIGRAM, UNK
     Route: 048
     Dates: start: 20200406, end: 20200409
  2. LEXOMIL [Suspect]
     Active Substance: BROMAZEPAM
     Indication: DEPRESSION
     Dosage: 6 MILLIGRAM, UNK
     Route: 048
     Dates: start: 20200406, end: 20200409
  3. FENTANYL. [Suspect]
     Active Substance: FENTANYL
     Indication: PAIN
     Dosage: 25 MICROGRAM, UNK
     Route: 062
     Dates: start: 20200407, end: 20200410

REACTIONS (2)
  - Suicide attempt [Fatal]
  - Agitation [Fatal]

NARRATIVE: CASE EVENT DATE: 20200409
